FAERS Safety Report 25485723 (Version 1)
Quarter: 2025Q2

REPORT INFORMATION
  Report Type: Spontaneous
  Country: TR (occurrence: TR)
  Receive Date: 20250626
  Receipt Date: 20250626
  Transmission Date: 20250717
  Serious: Yes (Hospitalization, Other)
  Sender: ASTELLAS
  Company Number: TR-ASTELLAS-2025-AER-032917

PATIENT
  Age: 66 Year
  Sex: Female

DRUGS (3)
  1. XOSPATA [Suspect]
     Active Substance: GILTERITINIB
     Indication: Acute myeloid leukaemia
     Route: 065
     Dates: start: 202210, end: 202211
  2. XOSPATA [Suspect]
     Active Substance: GILTERITINIB
     Indication: FLT3 gene mutation
     Dosage: 2ND CYCLE
     Route: 065
     Dates: start: 202212
  3. XOSPATA [Suspect]
     Active Substance: GILTERITINIB
     Dosage: 3RD CYCLE
     Route: 065
     Dates: start: 202302

REACTIONS (11)
  - Pyrexia [Unknown]
  - Hypertension [Unknown]
  - Altered state of consciousness [Unknown]
  - Graft versus host disease in skin [Unknown]
  - CSF cell count abnormal [Unknown]
  - Hypertension [Unknown]
  - Graft versus host disease in liver [Unknown]
  - Bacterial infection [Unknown]
  - Dizziness [Unknown]
  - Balance disorder [Unknown]
  - Nervous system disorder [Unknown]

NARRATIVE: CASE EVENT DATE: 20221101
